FAERS Safety Report 24175373 (Version 9)
Quarter: 2025Q3

REPORT INFORMATION
  Report Type: Report from Study
  Country: JP (occurrence: JP)
  Receive Date: 20240805
  Receipt Date: 20250722
  Transmission Date: 20251020
  Serious: Yes (Hospitalization, Other)
  Sender: GENMAB
  Company Number: JP-GENMAB-2024-02749

PATIENT
  Age: 75 Year
  Sex: Male
  Weight: 54.6 kg

DRUGS (10)
  1. EPKINLY [Suspect]
     Active Substance: EPCORITAMAB-BYSP
     Indication: Diffuse large B-cell lymphoma refractory
     Route: 058
     Dates: start: 20240206, end: 20240206
  2. EPKINLY [Suspect]
     Active Substance: EPCORITAMAB-BYSP
     Route: 058
     Dates: start: 20240213, end: 20240213
  3. EPKINLY [Suspect]
     Active Substance: EPCORITAMAB-BYSP
     Route: 058
     Dates: start: 20240219, end: 20240408
  4. EPKINLY [Suspect]
     Active Substance: EPCORITAMAB-BYSP
     Route: 058
     Dates: start: 20240701, end: 20240701
  5. EPKINLY [Suspect]
     Active Substance: EPCORITAMAB-BYSP
     Route: 058
     Dates: start: 20240708, end: 20240708
  6. EPKINLY [Suspect]
     Active Substance: EPCORITAMAB-BYSP
     Route: 058
     Dates: start: 2024, end: 202409
  7. EPKINLY [Suspect]
     Active Substance: EPCORITAMAB-BYSP
     Route: 058
     Dates: start: 202502
  8. CORTICOTROPIN [Suspect]
     Active Substance: CORTICOTROPIN
     Indication: Prophylaxis
     Dates: start: 202402, end: 202407
  9. SULFAMETHOXAZOLE\TRIMETHOPRIM [Concomitant]
     Active Substance: SULFAMETHOXAZOLE\TRIMETHOPRIM
     Indication: Prophylaxis
  10. ACYCLOVIR [Concomitant]
     Active Substance: ACYCLOVIR
     Indication: Prophylaxis

REACTIONS (15)
  - Hypogammaglobulinaemia [Unknown]
  - Spondylitis [Unknown]
  - Coronavirus infection [Recovered/Resolved]
  - Hypokalaemia [Unknown]
  - COVID-19 pneumonia [Recovered/Resolved]
  - Tumour flare [Recovering/Resolving]
  - Femoral neck fracture [Recovered/Resolved]
  - Spinal stenosis [Recovered/Resolved]
  - Cytomegalovirus test positive [Recovering/Resolving]
  - Hypoalbuminaemia [Unknown]
  - Fall [Unknown]
  - Alanine aminotransferase increased [Unknown]
  - Aspartate aminotransferase increased [Unknown]
  - Constipation [Unknown]
  - Hypomagnesaemia [Unknown]

NARRATIVE: CASE EVENT DATE: 20240101
